FAERS Safety Report 23154559 (Version 1)
Quarter: 2023Q4

REPORT INFORMATION
  Report Type: Spontaneous
  Country: US (occurrence: None)
  Receive Date: 20231107
  Receipt Date: 20231107
  Transmission Date: 20240110
  Serious: Yes (Other)
  Sender: FDA-Public Use
  Company Number: None

PATIENT
  Sex: Male

DRUGS (3)
  1. SIROLIMUS [Suspect]
     Active Substance: SIROLIMUS
     Indication: Congenital arterial malformation
     Dosage: 1 MG/ML ORAL??TAKE 1.5 ML BY MOUTH IN THE MORNING AND 1.4  ML IN THE EVENING, AT THE SAME TIME EVERY
     Route: 048
     Dates: start: 20190806
  2. SIROLIMUS [Suspect]
     Active Substance: SIROLIMUS
     Dosage: FREQUENCY : AS DIRECTED;?
     Route: 048
  3. GUANFACINE [Concomitant]
     Active Substance: GUANFACINE

REACTIONS (2)
  - Surgery [None]
  - Intentional dose omission [None]
